FAERS Safety Report 26045041 (Version 1)
Quarter: 2025Q4

REPORT INFORMATION
  Report Type: Spontaneous
  Country: GB (occurrence: GB)
  Receive Date: 20251114
  Receipt Date: 20251114
  Transmission Date: 20260118
  Serious: Yes (Other)
  Sender: ABBVIE
  Company Number: None

PATIENT
  Sex: Female

DRUGS (1)
  1. BOTOX [Suspect]
     Active Substance: ONABOTULINUMTOXINA
     Indication: Product used for unknown indication
     Dosage: TIME INTERVAL: AS NECESSARY
     Route: 065

REACTIONS (7)
  - Contusion [Unknown]
  - Swelling [Unknown]
  - Malaise [Unknown]
  - Rash papular [Recovered/Resolved]
  - Drug ineffective [Unknown]
  - Product administration error [Unknown]
  - Muscular weakness [Unknown]
